FAERS Safety Report 25776068 (Version 1)
Quarter: 2025Q3

REPORT INFORMATION
  Report Type: Spontaneous
  Country: US (occurrence: US)
  Receive Date: 20250909
  Receipt Date: 20250909
  Transmission Date: 20251020
  Serious: Yes (Hospitalization, Other)
  Sender: ABBVIE
  Company Number: US-ABBVIE-6446377

PATIENT
  Age: 45 Year
  Sex: Male

DRUGS (1)
  1. SKYRIZI [Suspect]
     Active Substance: RISANKIZUMAB-RZAA
     Indication: Psoriasis
     Route: 058
     Dates: start: 20210701, end: 2025

REACTIONS (4)
  - Pneumothorax [Unknown]
  - Lung cancer metastatic [Unknown]
  - Dyspnoea [Unknown]
  - Exposure to radiation [Unknown]

NARRATIVE: CASE EVENT DATE: 20250101
